FAERS Safety Report 14753348 (Version 2)
Quarter: 2018Q2

REPORT INFORMATION
  Report Type: Spontaneous
  Country: AE (occurrence: AE)
  Receive Date: 20180412
  Receipt Date: 20180427
  Transmission Date: 20180711
  Serious: Yes (Other)
  Sender: FDA-Public Use
  Company Number: AE-ROCHE-2096904

PATIENT

DRUGS (1)
  1. LUCENTIS [Suspect]
     Active Substance: RANIBIZUMAB
     Indication: DIABETIC RETINAL OEDEMA
     Route: 031
     Dates: start: 20180311

REACTIONS (6)
  - Endophthalmitis [Unknown]
  - Vitritis [Recovered/Resolved]
  - Vision blurred [Recovered/Resolved]
  - Anterior chamber disorder [Unknown]
  - Hypopyon [Unknown]
  - Visual impairment [Recovered/Resolved]

NARRATIVE: CASE EVENT DATE: 20180314
